FAERS Safety Report 9277385 (Version 1)
Quarter: 2013Q2

REPORT INFORMATION
  Report Type: Spontaneous
  Country: US (occurrence: None)
  Receive Date: 20130506
  Receipt Date: 20130506
  Transmission Date: 20140414
  Serious: Yes (Death)
  Sender: FDA-Public Use
  Company Number: None

PATIENT
  Age: 63 Year
  Sex: Male
  Weight: 76.3 kg

DRUGS (13)
  1. SATRAPLATIN [Suspect]
     Dosage: 150MG PO FOR DAYS 1-5
     Route: 048
     Dates: start: 20130315, end: 20130319
  2. ASPIRIN [Concomitant]
  3. MEGESTROL [Concomitant]
  4. ROSUVASTATIN [Concomitant]
  5. CHOLECALCIFEROL [Concomitant]
  6. VITAMIN D3 [Concomitant]
  7. LEUPROLIDE [Concomitant]
  8. NEBIVOLOL [Concomitant]
  9. TAMSULOSIN [Concomitant]
  10. ACETAMINOPHEN [Concomitant]
  11. PREDNISONE [Concomitant]
  12. LACTULOSE [Concomitant]
  13. MORPHINE [Concomitant]

REACTIONS (3)
  - Prostate cancer [None]
  - Pelvic pain [None]
  - Condition aggravated [None]
